FAERS Safety Report 23465832 (Version 1)
Quarter: 2024Q1

REPORT INFORMATION
  Report Type: Spontaneous
  Country: CA (occurrence: CA)
  Receive Date: 20240201
  Receipt Date: 20240201
  Transmission Date: 20240410
  Serious: Yes (Death, Life-Threatening, Hospitalization)
  Sender: FDA-Public Use
  Company Number: CA-PFIZER INC-202400028897

PATIENT
  Age: 3 Year
  Sex: Female

DRUGS (5)
  1. IRINOTECAN HYDROCHLORIDE [Suspect]
     Active Substance: IRINOTECAN HYDROCHLORIDE
     Indication: Neuroblastoma recurrent
     Dosage: UNK
  2. RAPAMUNE [Concomitant]
     Active Substance: SIROLIMUS
     Indication: Neuroblastoma recurrent
     Dosage: DAY1: 1.6 MG (3MG/M2) DAY2-4: 0.53 MG (1MG/M2)
  3. RAPAMUNE [Concomitant]
     Active Substance: SIROLIMUS
     Dosage: DAY1: 1.6 MG (3MG/M2) DAY2-4: 0.53 MG (1MG/M2)
  4. TEMOZOLOMIDE [Concomitant]
     Active Substance: TEMOZOLOMIDE
     Indication: Neuroblastoma recurrent
  5. DASATINIB [Concomitant]
     Active Substance: DASATINIB
     Indication: Neuroblastoma recurrent

REACTIONS (6)
  - Neoplasm progression [Fatal]
  - Cancer pain [Not Recovered/Not Resolved]
  - Somnolence [Not Recovered/Not Resolved]
  - Dyspnoea [Not Recovered/Not Resolved]
  - Pyrexia [Not Recovered/Not Resolved]
  - Off label use [Not Recovered/Not Resolved]

NARRATIVE: CASE EVENT DATE: 20231101
